FAERS Safety Report 5811903-5 (Version None)
Quarter: 2008Q3

REPORT INFORMATION
  Report Type: 
  Country: None (occurrence: None)
  Receive Date: 20080716
  Receipt Date: 20080707
  Transmission Date: 20090109
  Serious: Yes (Hospitalization, Other)
  Sender: FDA-Public Use
  Company Number: FR-ROCHE-549849

PATIENT
  Sex: Female

DRUGS (8)
  1. ROFERON-A [Suspect]
     Dosage: DOSING: MILLION OF UNIT THIRD PER DAY OF. FORM: INJECTABLE SOLUTION.
     Route: 042
     Dates: start: 20080118, end: 20080219
  2. ROFERON-A [Suspect]
     Dosage: 3 MILLION THIRD PER WEEK. DOSE REDUCED.
     Route: 042
  3. AVASTIN [Suspect]
     Indication: RENAL CANCER METASTATIC
     Dosage: SECOND ON 31 JAN 08 AND THIRD ON 14 FEB 08. FORM: INJECTABLE SOLUTION.
     Route: 042
     Dates: start: 20080118, end: 20080215
  4. NEO-MERCAZOLE TAB [Concomitant]
     Indication: HYPERTHYROIDISM
     Route: 048
     Dates: end: 20080218
  5. PROPOXYPHENE HCL AND ACETAMINOPHEN [Concomitant]
     Indication: ANALGESIC THERAPY
     Route: 048
     Dates: end: 20080218
  6. TOPALGIC [Concomitant]
     Indication: ANALGESIC THERAPY
     Route: 048
     Dates: end: 20080218
  7. NICARDIPINE HCL [Concomitant]
     Indication: HYPERTENSION
     Route: 048
     Dates: start: 20080221
  8. INTERFERON [Concomitant]
     Dosage: DOSING REGIMEN 9 MIU THIRD PER WEEK.

REACTIONS (2)
  - METASTASES TO CENTRAL NERVOUS SYSTEM [None]
  - REVERSIBLE POSTERIOR LEUKOENCEPHALOPATHY SYNDROME [None]
